FAERS Safety Report 9362793 (Version 1)
Quarter: 2013Q2

REPORT INFORMATION
  Report Type: Spontaneous
  Country: NL (occurrence: NL)
  Receive Date: 20130624
  Receipt Date: 20130624
  Transmission Date: 20140414
  Serious: Yes (Life-Threatening)
  Sender: FDA-Public Use
  Company Number: NL-ROXANE LABORATORIES, INC.-2013-RO-00996RO

PATIENT
  Age: 52 Year
  Sex: Male

DRUGS (3)
  1. METHADONE [Suspect]
  2. HEROIN [Suspect]
     Route: 042
  3. COCAINE [Suspect]
     Route: 042

REACTIONS (3)
  - Torsade de pointes [Recovered/Resolved]
  - Bradyarrhythmia [Recovered/Resolved]
  - Long QT syndrome [Recovered/Resolved]
